FAERS Safety Report 7456973-6 (Version None)
Quarter: 2011Q2

REPORT INFORMATION
  Report Type: 
  Country: None (occurrence: None)
  Receive Date: 20110504
  Receipt Date: 20110328
  Transmission Date: 20111010
  Serious: No
  Sender: FDA-Public Use
  Company Number: US-BAYER-2011-027052

PATIENT
  Sex: Male

DRUGS (1)
  1. YAZ [Suspect]
     Dosage: DAILY DOSE 4 DF
     Dates: start: 20110328, end: 20110328

REACTIONS (1)
  - ACCIDENTAL EXPOSURE [None]
